FAERS Safety Report 7676581-1 (Version None)
Quarter: 2011Q3

REPORT INFORMATION
  Report Type: 
  Country: None (occurrence: None)
  Receive Date: 20110805
  Receipt Date: 20110721
  Transmission Date: 20111222
  Serious: Yes (Hospitalization)
  Sender: FDA-Public Use
  Company Number: 2011MA009372

PATIENT
  Age: 2 Year
  Sex: Male

DRUGS (3)
  1. TRIMETHOPRIM [Suspect]
     Indication: UROSEPSIS
  2. IBUPROFEN [Suspect]
     Indication: UROSEPSIS
  3. ACETAMINOPHEN [Suspect]
     Indication: UROSEPSIS

REACTIONS (7)
  - HYPOPHAGIA [None]
  - RENAL PAPILLARY NECROSIS [None]
  - HAEMODIALYSIS [None]
  - URETERIC OBSTRUCTION [None]
  - RENAL FAILURE [None]
  - UROSEPSIS [None]
  - HYPERTENSION [None]
